FAERS Safety Report 7528064-7 (Version None)
Quarter: 2011Q2

REPORT INFORMATION
  Report Type: 
  Country: None (occurrence: None)
  Receive Date: 20110607
  Receipt Date: 20110602
  Transmission Date: 20111010
  Serious: Yes (Death, Life-Threatening, Hospitalization)
  Sender: FDA-Public Use
  Company Number: CN-BRISTOL-MYERS SQUIBB COMPANY-15780828

PATIENT
  Age: 67 Year
  Sex: Female
  Weight: 42 kg

DRUGS (4)
  1. CETUXIMAB [Suspect]
     Indication: COLORECTAL CANCER
     Route: 042
     Dates: start: 20110128, end: 20110523
  2. OXALIPLATIN [Suspect]
     Indication: COLORECTAL CANCER
     Dosage: RECENT INF:30APR11
     Route: 042
     Dates: start: 20110128, end: 20110430
  3. LEUCOVORIN CALCIUM [Suspect]
     Indication: COLORECTAL CANCER
     Dosage: 28JAN11 1 IN 2WK 30APR11 300MG 01MAY11(RECENT INF) 300MG
     Route: 042
     Dates: start: 20110128, end: 20110501
  4. FLUOROURACIL [Suspect]
     Indication: COLORECTAL CANCER
     Dosage: 28JAN11 1 IN 2 WK 30APR11 600MG 1MAY11 600MG 30APR11(RECENT INF)-2MAY11 1800MG
     Route: 042
     Dates: start: 20110128, end: 20110502

REACTIONS (2)
  - DYSPNOEA [None]
  - MULTI-ORGAN FAILURE [None]
